FAERS Safety Report 9385932 (Version 2)
Quarter: 2013Q3

REPORT INFORMATION
  Report Type: Report from Study
  Country: CA (occurrence: CA)
  Receive Date: 20130705
  Receipt Date: 20130802
  Transmission Date: 20140515
  Serious: Yes (Hospitalization)
  Sender: FDA-Public Use
  Company Number: CA-ABBOTT-13P-028-1114013-00

PATIENT
  Age: 50 Year
  Sex: Female
  Weight: 43.58 kg

DRUGS (5)
  1. HUMIRA [Suspect]
     Indication: CROHN^S DISEASE
     Route: 058
     Dates: start: 20130215, end: 20130516
  2. HUMIRA [Suspect]
     Dates: start: 20130616
  3. AZATHIOPRINE [Concomitant]
     Indication: CROHN^S DISEASE
     Route: 048
  4. OLESTYR [Concomitant]
     Indication: PRODUCT USED FOR UNKNOWN INDICATION
  5. IMODIUM [Concomitant]
     Indication: PRODUCT USED FOR UNKNOWN INDICATION

REACTIONS (6)
  - Fatigue [Recovered/Resolved]
  - Crohn^s disease [Recovered/Resolved]
  - Blood creatinine increased [Recovering/Resolving]
  - Haemoglobin decreased [Unknown]
  - Blood potassium decreased [Recovered/Resolved]
  - Diarrhoea [Recovered/Resolved]
